FAERS Safety Report 8296030-2 (Version None)
Quarter: 2012Q2

REPORT INFORMATION
  Report Type: 
  Country: None (occurrence: None)
  Receive Date: 20120418
  Receipt Date: 20120412
  Transmission Date: 20120825
  Serious: Yes (Hospitalization)
  Sender: FDA-Public Use
  Company Number: US-GLAXOSMITHKLINE-A0794730A

PATIENT
  Age: 65 Year
  Sex: Female
  Weight: 78.2 kg

DRUGS (4)
  1. LOPRESSOR [Concomitant]
  2. GLUCOPHAGE [Concomitant]
  3. CRESTOR [Concomitant]
  4. AVANDIA [Suspect]
     Indication: TYPE 2 DIABETES MELLITUS
     Dosage: 8MG PER DAY
     Route: 048
     Dates: start: 20030422, end: 20050707

REACTIONS (1)
  - MYOCARDIAL INFARCTION [None]
